FAERS Safety Report 9780548 (Version 1)
Quarter: 2013Q4

REPORT INFORMATION
  Report Type: Spontaneous
  Country: ES (occurrence: ES)
  Receive Date: 20131224
  Receipt Date: 20131224
  Transmission Date: 20140711
  Serious: Yes (Other)
  Sender: FDA-Public Use
  Company Number: ES-AMGEN-ESPSP2013088357

PATIENT
  Age: 49 Year
  Sex: Female
  Weight: 48 kg

DRUGS (7)
  1. VECTIBIX [Suspect]
     Indication: COLON NEOPLASM
     Dosage: 20 MG/ML, UNK
     Route: 042
     Dates: start: 20130916
  2. FLUOROURACILO FERRER FARMA [Suspect]
     Indication: COLON NEOPLASM
     Dosage: UNK UNK, UNK
     Route: 042
     Dates: start: 20130916, end: 20131125
  3. IRINOTECAN [Suspect]
     Indication: COLON NEOPLASM
     Dosage: UNK
     Route: 042
     Dates: start: 20130916
  4. FOLINIC ACID [Concomitant]
     Indication: COLON NEOPLASM
     Dosage: UNK
     Route: 042
     Dates: start: 20130916, end: 20131125
  5. CERTICAN [Concomitant]
     Indication: PROPHYLAXIS AGAINST TRANSPLANT REJECTION
     Dosage: 1.5 MG, BID
     Route: 048
  6. SIMVASTATIN [Concomitant]
     Dosage: 10 MG, QD
     Route: 048
  7. CELLCEPT                           /01275102/ [Concomitant]
     Indication: PROPHYLAXIS AGAINST TRANSPLANT REJECTION
     Dosage: 50 MG, UNK
     Route: 048

REACTIONS (1)
  - Stomatitis [Recovering/Resolving]
